FAERS Safety Report 6691328-3 (Version None)
Quarter: 2010Q2

REPORT INFORMATION
  Report Type: 
  Country: None (occurrence: None)
  Receive Date: 20100416
  Receipt Date: 20100401
  Transmission Date: 20101027
  Serious: Yes (Hospitalization)
  Sender: FDA-Public Use
  Company Number: AUR-APL-2010-00967

PATIENT
  Age: 45 Year
  Sex: Female

DRUGS (8)
  1. CEPHALEXIN [Suspect]
     Indication: LOWER RESPIRATORY TRACT INFECTION
     Dosage: ORAL
     Route: 048
     Dates: start: 20090915, end: 20091015
  2. ACICLOVIR 5% [Concomitant]
  3. AUGMENTIN '500' [Concomitant]
  4. CITALOPRAM HYDROBROMIDE [Concomitant]
  5. CLENIL MODULITE INHALATION 250UG [Concomitant]
  6. DIAZEPAM [Concomitant]
  7. LACTULOSE 10ML [Concomitant]
  8. LYRICA [Concomitant]

REACTIONS (1)
  - CHOLESTASIS [None]
